FAERS Safety Report 4546780-6 (Version None)
Quarter: 2005Q1

REPORT INFORMATION
  Report Type: 
  Country: None (occurrence: None)
  Receive Date: 20050105
  Receipt Date: 20041223
  Transmission Date: 20050727
  Serious: Yes (Hospitalization)
  Sender: FDA-Public Use
  Company Number: 2004SE07059

PATIENT
  Age: 49 Year
  Sex: Female
  Weight: 85 kg

DRUGS (6)
  1. CRESTOR [Suspect]
     Indication: HYPERCHOLESTEROLAEMIA
     Dosage: 10 MG DAILY PO
     Route: 048
     Dates: start: 20041120, end: 20041210
  2. LEUCOVORIN CALCIUM [Concomitant]
  3. FERRO-GRAD [Concomitant]
  4. EPARGRISEOVIT [Concomitant]
  5. ZOLOFT [Concomitant]
  6. OMEGA-3 [Concomitant]

REACTIONS (4)
  - DERMATITIS ACNEIFORM [None]
  - DRUG INEFFECTIVE [None]
  - RASH PAPULAR [None]
  - RASH SCALY [None]
